FAERS Safety Report 4758663-7 (Version None)
Quarter: 2005Q3

REPORT INFORMATION
  Report Type: 
  Country: None (occurrence: None)
  Receive Date: 20050830
  Receipt Date: 20050830
  Transmission Date: 20060218
  Serious: Yes (Hospitalization, Disabling)
  Sender: FDA-Public Use
  Company Number: None

PATIENT
  Age: 82 Year
  Sex: Male
  Weight: 87.9978 kg

DRUGS (5)
  1. ALTEPLASE 1 MG/ML [Suspect]
     Indication: EMBOLIC STROKE
     Dosage: 15 ML /HOUR
     Dates: start: 20050612
  2. HEPARIN [Suspect]
     Indication: EMBOLIC STROKE
     Dosage: 500 UNITS /HOUR
     Dates: start: 20050612, end: 20050613
  3. LISINOPRIL [Concomitant]
  4. NPH INSULIN [Concomitant]
  5. REGULAR INSULIN [Concomitant]

REACTIONS (3)
  - HAEMORRHAGE INTRACRANIAL [None]
  - HEMIPARESIS [None]
  - HEMIPLEGIA [None]
